FAERS Safety Report 4619418-7 (Version None)
Quarter: 2005Q2

REPORT INFORMATION
  Report Type: 
  Country: None (occurrence: None)
  Receive Date: 20050321
  Receipt Date: 20040506
  Transmission Date: 20051028
  Serious: Yes (Hospitalization)
  Sender: FDA-Public Use
  Company Number: 2004-05-0352

PATIENT
  Age: 42 Year
  Sex: Female
  Weight: 94.3482 kg

DRUGS (7)
  1. PEG-INTRON [Suspect]
     Indication: HEPATITIS C
     Dosage: 150 MCG QW SUBCUTANEOUS
     Route: 058
     Dates: start: 20040121, end: 20040505
  2. REBETOL [Suspect]
     Indication: HEPATITIS C
     Dosage: 1200 MG QD ORAL
     Route: 048
     Dates: start: 20040121, end: 20040505
  3. PROTONIX [Concomitant]
  4. LORAZEPAM [Concomitant]
  5. CLONIDINE [Concomitant]
  6. IBUPROFEN [Concomitant]
  7. AMITRIPTYLINE HCL TAB [Concomitant]

REACTIONS (3)
  - ANAEMIA [None]
  - DYSPNOEA [None]
  - FATIGUE [None]
